FAERS Safety Report 6154060-0 (Version None)
Quarter: 2009Q2

REPORT INFORMATION
  Report Type: 
  Country: None (occurrence: None)
  Receive Date: 20090414
  Receipt Date: 20090402
  Transmission Date: 20091009
  Serious: Yes (Other)
  Sender: FDA-Public Use
  Company Number: GB-ABBOTT-09P-167-0566427-00

PATIENT
  Age: 26 Year
  Sex: Female

DRUGS (3)
  1. RITONAVIR [Suspect]
     Indication: HIV INFECTION
     Route: 048
     Dates: start: 20080924, end: 20081014
  2. SAQUINAVIR [Concomitant]
     Indication: HIV INFECTION
     Route: 048
     Dates: start: 20080924, end: 20081014
  3. RIFABUTIN [Concomitant]
     Indication: HIV INFECTION
     Route: 048
     Dates: start: 20080903, end: 20080924

REACTIONS (1)
  - ABORTION INDUCED [None]
